FAERS Safety Report 8030459-2 (Version None)
Quarter: 2012Q1

REPORT INFORMATION
  Report Type: 
  Country: None (occurrence: None)
  Receive Date: 20120105
  Receipt Date: 20111222
  Transmission Date: 20120608
  Serious: Yes (Other)
  Sender: FDA-Public Use
  Company Number: TPG2011A03203

PATIENT
  Age: 58 Year
  Sex: Male

DRUGS (3)
  1. AMARYL [Concomitant]
  2. METFORMIN HCL [Concomitant]
  3. ACTOS [Suspect]
     Indication: TYPE 2 DIABETES MELLITUS
     Dosage: ORAL
     Route: 048
     Dates: start: 20091005

REACTIONS (2)
  - HAEMATURIA [None]
  - PYELONEPHRITIS [None]
